FAERS Safety Report 25093099 (Version 1)
Quarter: 2025Q1

REPORT INFORMATION
  Report Type: Spontaneous
  Country: CA (occurrence: CA)
  Receive Date: 20250319
  Receipt Date: 20250319
  Transmission Date: 20250409
  Serious: Yes (Other)
  Sender: BIOCODEX
  Company Number: CA-BIOCODEX2-2025000301

PATIENT
  Age: 4 Year
  Sex: Female

DRUGS (4)
  1. STIRIPENTOL [Suspect]
     Active Substance: STIRIPENTOL
     Indication: Partial seizures
     Route: 065
  2. CANNABIDIOL [Suspect]
     Active Substance: CANNABIDIOL
     Indication: Partial seizures
     Route: 065
  3. CLOBAZAM [Suspect]
     Active Substance: CLOBAZAM
     Indication: Partial seizures
     Route: 065
  4. VALPROIC ACID [Suspect]
     Active Substance: VALPROIC ACID
     Indication: Partial seizures
     Route: 065

REACTIONS (1)
  - Drug ineffective [Unknown]
